FAERS Safety Report 7303614-4 (Version None)
Quarter: 2011Q1

REPORT INFORMATION
  Report Type: 
  Country: None (occurrence: None)
  Receive Date: 20110221
  Receipt Date: 20110207
  Transmission Date: 20110831
  Serious: Yes (Other)
  Sender: FDA-Public Use
  Company Number: PHHY2011JP10334

PATIENT
  Sex: Male

DRUGS (1)
  1. SANDOSTATIN LAR [Suspect]
     Indication: SHORT-BOWEL SYNDROME
     Route: 030

REACTIONS (4)
  - DIZZINESS [None]
  - HEADACHE [None]
  - PITUITARY HAEMORRHAGE [None]
  - NAUSEA [None]
